FAERS Safety Report 16607767 (Version 2)
Quarter: 2019Q3

REPORT INFORMATION
  Report Type: Spontaneous
  Country: JP (occurrence: JP)
  Receive Date: 20190722
  Receipt Date: 20190813
  Transmission Date: 20191004
  Serious: Yes (Disabling)
  Sender: FDA-Public Use
  Company Number: JP-REGENERON PHARMACEUTICALS, INC.-2019-28141

PATIENT

DRUGS (7)
  1. EYLEA [Suspect]
     Active Substance: AFLIBERCEPT
     Dosage: ONCE, RIGHT EYE
     Route: 031
     Dates: start: 20170830, end: 20170830
  2. EYLEA [Suspect]
     Active Substance: AFLIBERCEPT
     Dosage: ONCE, RIGHT EYE
     Route: 031
     Dates: start: 20180227, end: 20180227
  3. EYLEA [Suspect]
     Active Substance: AFLIBERCEPT
     Dosage: ONCE, RIGHT EYE
     Route: 031
     Dates: start: 20170324, end: 20170324
  4. EYLEA [Suspect]
     Active Substance: AFLIBERCEPT
     Indication: RETINAL VEIN OCCLUSION
     Dosage: ONCE, RIGHT EYE
     Route: 031
     Dates: start: 20161226, end: 20161226
  5. EYLEA [Suspect]
     Active Substance: AFLIBERCEPT
     Dosage: ONCE, RIGHT EYE
     Route: 031
     Dates: start: 20170210, end: 20170210
  6. EYLEA [Suspect]
     Active Substance: AFLIBERCEPT
     Dosage: ONCE, RIGHT EYE
     Route: 031
     Dates: start: 20180821
  7. EYLEA [Suspect]
     Active Substance: AFLIBERCEPT
     Dosage: ONCE, RIGHT EYE
     Route: 031
     Dates: start: 20190319, end: 20190319

REACTIONS (2)
  - Cerebral infarction [Not Recovered/Not Resolved]
  - Cerebral haemorrhage [Not Recovered/Not Resolved]

NARRATIVE: CASE EVENT DATE: 20190404
